FAERS Safety Report 16298595 (Version 1)
Quarter: 2019Q2

REPORT INFORMATION
  Report Type: Spontaneous
  Country: NZ (occurrence: NZ)
  Receive Date: 20190510
  Receipt Date: 20190510
  Transmission Date: 20190711
  Serious: Yes (Hospitalization)
  Sender: FDA-Public Use
  Company Number: NZ-ABBVIE-19K-118-2773391-00

PATIENT
  Sex: Female

DRUGS (10)
  1. SALBUTAMOL [Concomitant]
     Active Substance: ALBUTEROL
     Indication: PRODUCT USED FOR UNKNOWN INDICATION
     Dosage: 2 PUFFS EVERY FOUR HOURS
  2. ASPIRIN. [Concomitant]
     Active Substance: ASPIRIN
     Indication: PRODUCT USED FOR UNKNOWN INDICATION
  3. TICAGRELOR. [Interacting]
     Active Substance: TICAGRELOR
     Indication: PRODUCT USED FOR UNKNOWN INDICATION
     Route: 065
  4. METFORMIN [Concomitant]
     Active Substance: METFORMIN HYDROCHLORIDE
     Indication: PRODUCT USED FOR UNKNOWN INDICATION
     Dosage: 2 TABLET
  5. GLIPIZIDE. [Concomitant]
     Active Substance: GLIPIZIDE
     Indication: PRODUCT USED FOR UNKNOWN INDICATION
  6. MAVIRET [Suspect]
     Active Substance: GLECAPREVIR\PIBRENTASVIR
     Indication: PRODUCT USED FOR UNKNOWN INDICATION
     Dosage: STOPPED 12 WEEK TREATMENT AT WEEK 10
     Route: 048
     Dates: end: 2019
  7. ALLOPURINOL. [Concomitant]
     Active Substance: ALLOPURINOL
     Indication: PRODUCT USED FOR UNKNOWN INDICATION
  8. CILAZAPRIL [Concomitant]
     Active Substance: CILAZAPRIL ANHYDROUS
     Indication: PRODUCT USED FOR UNKNOWN INDICATION
  9. FELODIPINE. [Concomitant]
     Active Substance: FELODIPINE
     Indication: PRODUCT USED FOR UNKNOWN INDICATION
  10. METOPROLOL. [Concomitant]
     Active Substance: METOPROLOL
     Indication: PRODUCT USED FOR UNKNOWN INDICATION

REACTIONS (24)
  - Right ventricular dilatation [Unknown]
  - Hypotension [Unknown]
  - Left ventricular end-diastolic pressure increased [Unknown]
  - Acute pulmonary oedema [Unknown]
  - Pneumonia [Unknown]
  - Acute kidney injury [Recovered/Resolved]
  - Sepsis [Unknown]
  - Blood creatinine increased [Unknown]
  - Aortic valve stenosis [Unknown]
  - Acute coronary syndrome [Unknown]
  - Left ventricular dysfunction [Unknown]
  - Mitral valve calcification [Unknown]
  - Drug interaction [Unknown]
  - Electrocardiogram T wave inversion [Unknown]
  - Atrial fibrillation [Unknown]
  - Aortic valve incompetence [Unknown]
  - Right ventricular dysfunction [Unknown]
  - Cardiac failure [Unknown]
  - Left atrial dilatation [Unknown]
  - Left ventricular failure [Unknown]
  - Aortic valve calcification [Unknown]
  - Right atrial dilatation [Unknown]
  - Pulmonary arterial pressure abnormal [Unknown]
  - White blood cell count increased [Unknown]

NARRATIVE: CASE EVENT DATE: 2019
